FAERS Safety Report 20062186 (Version 1)
Quarter: 2021Q4

REPORT INFORMATION
  Report Type: Spontaneous
  Country: BR (occurrence: BR)
  Receive Date: 20211112
  Receipt Date: 20211112
  Transmission Date: 20220304
  Serious: Yes (Other)
  Sender: FDA-Public Use
  Company Number: None

PATIENT
  Age: 74 Year
  Sex: Female
  Weight: 70 kg

DRUGS (10)
  1. SIMVASTATIN [Suspect]
     Active Substance: SIMVASTATIN
     Indication: Hyperlipidaemia
     Dosage: 20 MILLIGRAM
     Dates: start: 20150101
  2. ENALAPRIL MALEATE [Suspect]
     Active Substance: ENALAPRIL MALEATE
     Indication: Hypertension
     Dosage: 20 MILLIGRAM
     Dates: start: 20170101, end: 20210714
  3. EPOETIN ALFA [Suspect]
     Active Substance: ERYTHROPOIETIN
     Indication: Anaemia
     Dosage: UNK
     Dates: start: 20210607
  4. FUROSEMIDE [Suspect]
     Active Substance: FUROSEMIDE
     Indication: Polyuria
     Dosage: 20 MILLIGRAM
     Dates: start: 20190101
  5. INSULIN HUMAN [Concomitant]
     Active Substance: INSULIN HUMAN
     Dosage: UNK
  6. FLAVONID [Concomitant]
     Indication: Varicose ulceration
     Dosage: 500 MILLIGRAM
  7. AMLODIPINE BESYLATE [Concomitant]
     Active Substance: AMLODIPINE BESYLATE
     Indication: Hypertension
     Dosage: UNK
     Dates: start: 20210714
  8. FOLIC ACID\IRON POLYMALTOSE [Concomitant]
     Active Substance: FOLIC ACID\IRON POLYMALTOSE
     Indication: Anaemia prophylaxis
     Dosage: 1 TABLET
     Dates: start: 20210715
  9. ALLOPURINOL [Concomitant]
     Active Substance: ALLOPURINOL
     Indication: Blood uric acid increased
     Dosage: 300 MILLIGRAM
     Dates: start: 20210602
  10. HYDROCHLOROTHIAZIDE [Concomitant]
     Active Substance: HYDROCHLOROTHIAZIDE
     Indication: Polyuria
     Dosage: 15 MILLIGRAM
     Dates: start: 20170101, end: 20190101

REACTIONS (10)
  - Off label use [Unknown]
  - Blood creatinine increased [Unknown]
  - Anaemia [Unknown]
  - Blood creatinine increased [Unknown]
  - Off label use [Unknown]
  - Wrong technique in product usage process [Unknown]
  - Renal failure [Unknown]
  - Glomerular filtration rate decreased [Unknown]
  - Glomerular filtration rate decreased [Unknown]
  - Renal impairment [Unknown]

NARRATIVE: CASE EVENT DATE: 20170101
